FAERS Safety Report 19184089 (Version 1)
Quarter: 2021Q2

REPORT INFORMATION
  Report Type: Spontaneous
  Country: US (occurrence: US)
  Receive Date: 20210425
  Receipt Date: 20210425
  Transmission Date: 20210717
  Serious: Yes (Hospitalization)
  Sender: FDA-Public Use
  Company Number: None

PATIENT
  Age: 36 Year
  Sex: Female

DRUGS (1)
  1. PARAGARD T 380A [Suspect]
     Active Substance: COPPER
     Dates: start: 20100601, end: 20201029

REACTIONS (4)
  - Device breakage [None]
  - Complication of device removal [None]
  - Embedded device [None]
  - Device dislocation [None]

NARRATIVE: CASE EVENT DATE: 20201029
